FAERS Safety Report 20570584 (Version 1)
Quarter: 2022Q1

REPORT INFORMATION
  Report Type: Report from Study
  Country: FR (occurrence: FR)
  Receive Date: 20220309
  Receipt Date: 20220309
  Transmission Date: 20220424
  Serious: Yes (Hospitalization)
  Sender: FDA-Public Use
  Company Number: FR-SERVIER-S22002252

PATIENT

DRUGS (15)
  1. PEGASPARGASE [Suspect]
     Active Substance: PEGASPARGASE
     Indication: Acute lymphocytic leukaemia
     Dosage: 2475 IU ON D4
     Route: 042
     Dates: start: 20211115
  2. DEXAMETHASONE [Suspect]
     Active Substance: DEXAMETHASONE
     Indication: Acute lymphocytic leukaemia
     Dosage: 10 MG ON D1 TO D7
     Route: 048
     Dates: start: 20211112
  3. VINCRISTINE [Suspect]
     Active Substance: VINCRISTINE
     Indication: Acute lymphocytic leukaemia
     Dosage: 1.5 MG ON D1, D8 AND D15
     Route: 042
     Dates: start: 20211112, end: 20211126
  4. DAUNORUBICIN [Suspect]
     Active Substance: DAUNORUBICIN
     Indication: Acute lymphocytic leukaemia
     Dosage: 24.8 MG ON D1, D8, AND D15
     Route: 042
     Dates: start: 20211112, end: 20211126
  5. METHOTREXATE [Suspect]
     Active Substance: METHOTREXATE
     Indication: Acute lymphocytic leukaemia
     Dosage: 12 MG ON D4
     Route: 037
     Dates: start: 20211115
  6. CYTARABINE [Suspect]
     Active Substance: CYTARABINE
     Indication: Acute lymphocytic leukaemia
     Dosage: 30 MG ON D4
     Route: 037
     Dates: start: 20211115
  7. HYDROCORTISONE [Suspect]
     Active Substance: HYDROCORTISONE
     Indication: Acute lymphocytic leukaemia
     Dosage: 15 MG ON D4
     Route: 037
     Dates: start: 20211115
  8. TN UNSPECIFIED [Concomitant]
     Indication: Product used for unknown indication
     Route: 065
  9. TN UNSPECIFIED [Concomitant]
     Indication: Product used for unknown indication
     Route: 065
  10. TN UNSPECIFIED [Concomitant]
     Indication: Product used for unknown indication
     Route: 065
  11. TN UNSPECIFIED [Concomitant]
     Indication: Product used for unknown indication
     Route: 065
  12. TN UNSPECIFIED [Concomitant]
     Indication: Product used for unknown indication
     Route: 065
  13. TN UNSPECIFIED [Concomitant]
     Indication: Product used for unknown indication
     Route: 065
  14. TN UNSPECIFIED [Concomitant]
     Indication: Product used for unknown indication
     Route: 065
  15. TN UNSPECIFIED [Concomitant]
     Indication: Product used for unknown indication
     Route: 065

REACTIONS (1)
  - Febrile bone marrow aplasia [Recovered/Resolved]

NARRATIVE: CASE EVENT DATE: 20211206
